FAERS Safety Report 25886899 (Version 1)
Quarter: 2025Q4

REPORT INFORMATION
  Report Type: Spontaneous
  Country: US (occurrence: US)
  Receive Date: 20251006
  Receipt Date: 20251006
  Transmission Date: 20260118
  Serious: Yes (Other)
  Sender: AMERICAN REGENT
  Company Number: US-AMERICAN REGENT INC-2025003688

PATIENT
  Age: 36 Year
  Sex: Male

DRUGS (5)
  1. PACLITAXEL [Suspect]
     Active Substance: PACLITAXEL
     Indication: Angiosarcoma metastatic
     Dosage: DAY 24: 160 MG ONCE WEEKLY (3 WEEKS ON, 1 WEEK OFF)
     Route: 065
  2. PACLITAXEL [Suspect]
     Active Substance: PACLITAXEL
     Dosage: UNK, DAY 41
     Route: 065
  3. CEFTRIAXONE [Concomitant]
     Active Substance: CEFTRIAXONE
     Indication: Haemophilus infection
     Dosage: 2 GRAMS DAILY
     Route: 065
  4. CEFTRIAXONE [Concomitant]
     Active Substance: CEFTRIAXONE
     Indication: Evidence based treatment
     Dosage: 2 GRAMS DAILY (CONTINUATION)
     Route: 065
  5. VANCOMYCIN [Concomitant]
     Active Substance: VANCOMYCIN
     Indication: Evidence based treatment
     Dosage: 1 GRAM EVERY 8 HOURS
     Route: 065

REACTIONS (4)
  - Hypoxia [Unknown]
  - Infusion related reaction [Unknown]
  - Dyspnoea [Unknown]
  - Product use in unapproved indication [Unknown]
